FAERS Safety Report 5112946-X (Version None)
Quarter: 2006Q3

REPORT INFORMATION
  Report Type: 
  Country: None (occurrence: None)
  Receive Date: 20060921
  Receipt Date: 20060921
  Transmission Date: 20061208
  Serious: No
  Sender: FDA-Public Use
  Company Number: None

PATIENT
  Sex: Male
  Weight: 251.8 kg

DRUGS (4)
  1. BACTRIM DS [Suspect]
     Indication: INFECTION
     Dosage: 800/160 BID PO
     Route: 048
     Dates: start: 20060802, end: 20060803
  2. VENLAFAXINE HCL [Suspect]
     Indication: AFFECTIVE DISORDER
     Dosage: 150 QAM PO
     Route: 048
     Dates: start: 20060519, end: 20060807
  3. VENLAFAXINE HCL [Suspect]
     Indication: DEPRESSION
     Dosage: 150 QAM PO
     Route: 048
     Dates: start: 20060519, end: 20060807
  4. PSEUDO 60/TRIPROLIDINE [Concomitant]

REACTIONS (3)
  - CHEST DISCOMFORT [None]
  - HYPERHIDROSIS [None]
  - PAIN [None]
